FAERS Safety Report 5650823-6 (Version None)
Quarter: 2008Q1

REPORT INFORMATION
  Report Type: 
  Country: None (occurrence: None)
  Receive Date: 20080131
  Receipt Date: 20071107
  Transmission Date: 20080703
  Serious: No
  Sender: FDA-Public Use
  Company Number: US200711001271

PATIENT
  Age: 69 Year
  Sex: Female

DRUGS (4)
  1. BYETTA [Suspect]
     Indication: TYPE 2 DIABETES MELLITUS
     Dosage: 5 UG, DAILY (1/D), SUBCUTANEOUS, 5 UG, 2/D, SUBCUTANEOUS
     Route: 058
     Dates: start: 20071101, end: 20071105
  2. BYETTA [Suspect]
     Indication: TYPE 2 DIABETES MELLITUS
     Dosage: 5 UG, DAILY (1/D), SUBCUTANEOUS, 5 UG, 2/D, SUBCUTANEOUS
     Route: 058
     Dates: start: 20071105
  3. METFORMIN HCL [Concomitant]
  4. GLUCOVANCE [Concomitant]

REACTIONS (1)
  - BLOOD GLUCOSE INCREASED [None]
